FAERS Safety Report 23886360 (Version 1)
Quarter: 2024Q2

REPORT INFORMATION
  Report Type: Spontaneous
  Country: US (occurrence: US)
  Receive Date: 20240522
  Receipt Date: 20240522
  Transmission Date: 20240716
  Serious: Yes (Life-Threatening, Hospitalization)
  Sender: FDA-Public Use
  Company Number: US-MYLANLABS-2024M1045782

PATIENT
  Age: 53 Year
  Sex: Female

DRUGS (1)
  1. EPINEPHRINE [Suspect]
     Active Substance: EPINEPHRINE
     Indication: Hypotension
     Dosage: UNK
     Route: 065

REACTIONS (5)
  - Paradoxical drug reaction [Recovering/Resolving]
  - Pulmonary valve incompetence [Recovering/Resolving]
  - Condition aggravated [Recovering/Resolving]
  - Cardiac index decreased [Recovering/Resolving]
  - Pulmonary arterial pressure increased [Recovering/Resolving]
